FAERS Safety Report 9782230 (Version 2)
Quarter: 2014Q1

REPORT INFORMATION
  Report Type: Spontaneous
  Country: DE (occurrence: DE)
  Receive Date: 20131226
  Receipt Date: 20140228
  Transmission Date: 20141002
  Serious: Yes (Hospitalization, Other)
  Sender: FDA-Public Use
  Company Number: DE-009507513-1312DEU009937

PATIENT
  Age: 46 Year
  Sex: Female

DRUGS (1)
  1. IMPLANON [Suspect]
     Indication: CONTRACEPTION
     Dosage: UNK
     Dates: start: 20080205, end: 20140212

REACTIONS (7)
  - Hysterectomy [Unknown]
  - Device difficult to use [Recovering/Resolving]
  - Incorrect drug administration duration [Unknown]
  - Medical device complication [Recovering/Resolving]
  - General anaesthesia [Unknown]
  - Device deployment issue [Recovering/Resolving]
  - Device difficult to use [Recovering/Resolving]
